FAERS Safety Report 4550751-3 (Version None)
Quarter: 2004Q4

REPORT INFORMATION
  Report Type: 
  Country: None (occurrence: None)
  Receive Date: 20041217
  Receipt Date: 20040928
  Transmission Date: 20050328
  Serious: No
  Sender: FDA-Public Use
  Company Number: 2004-BP-08955BP(0)

PATIENT
  Age: 79 Year
  Sex: Female

DRUGS (8)
  1. SPIRIVA [Suspect]
     Indication: CARDIAC FAILURE CONGESTIVE
     Dosage: 18 MCG (18 MCG) IH
     Route: 055
  2. ALBUTEROL [Concomitant]
  3. COMBIVENT [Concomitant]
  4. ADVAIR (SERETIDE MITE) [Concomitant]
  5. COUMADIN [Concomitant]
  6. LASIX [Concomitant]
  7. LISINOPRIL [Concomitant]
  8. LAMICTAL [Concomitant]

REACTIONS (1)
  - DRUG INEFFECTIVE [None]
